FAERS Safety Report 6086612-0 (Version None)
Quarter: 2009Q1

REPORT INFORMATION
  Report Type: 
  Country: None (occurrence: None)
  Receive Date: 20090223
  Receipt Date: 20090210
  Transmission Date: 20090719
  Serious: Yes (Hospitalization, Other)
  Sender: FDA-Public Use
  Company Number: US-PFIZER INC-2009168156

PATIENT
  Sex: Male
  Weight: 102.5 kg

DRUGS (12)
  1. EXUBERA [Suspect]
     Indication: DIABETES MELLITUS
     Dosage: UNK
  2. LISINOPRIL [Concomitant]
     Dosage: UNK
  3. TAMSULOSIN HYDROCHLORIDE [Concomitant]
     Dosage: UNK
  4. TRAZODONE [Concomitant]
     Indication: DEPRESSION
     Dosage: UNK
  5. DOXAZOSIN MESILATE [Concomitant]
     Dosage: UNK
  6. NORVASC [Concomitant]
     Dosage: UNK
  7. LASIX [Concomitant]
     Dosage: 40 MG, 4X/DAY
  8. GLIPIZIDE [Concomitant]
     Indication: DIABETES MELLITUS
     Dosage: UNK
  9. METOPROLOL TARTRATE [Concomitant]
     Dosage: UNK
  10. SITAGLIPTIN [Concomitant]
     Dosage: UNK
  11. ALL OTHER THERAPEUTIC PRODUCTS [Concomitant]
     Dosage: UNK
  12. ALDACTONE [Concomitant]
     Dosage: UNK

REACTIONS (9)
  - ANAEMIA [None]
  - BLADDER OBSTRUCTION [None]
  - CLOSTRIDIAL INFECTION [None]
  - DYSPNOEA [None]
  - MYOCARDIAL INFARCTION [None]
  - PNEUMONIA [None]
  - RENAL FAILURE [None]
  - SLEEP APNOEA SYNDROME [None]
  - STAPHYLOCOCCAL INFECTION [None]
